FAERS Safety Report 9998024 (Version 1)
Quarter: 2014Q1

REPORT INFORMATION
  Report Type: Other
  Country: GB (occurrence: GB)
  Receive Date: 20140311
  Receipt Date: 20140311
  Transmission Date: 20141002
  Serious: Yes (Hospitalization)
  Sender: FDA-Public Use
  Company Number: GB-BRISTOL-MYERS SQUIBB COMPANY-20393377

PATIENT
  Age: 57 Year
  Sex: Male

DRUGS (7)
  1. WARFARIN SODIUM [Suspect]
     Indication: DEEP VEIN THROMBOSIS
     Dosage: 1 ST 2 DAY=10 MG?3 RD DAY=5 MG
  2. ASPIRIN [Interacting]
  3. SIMVASTATIN [Interacting]
  4. CO-AMOXICLAV [Interacting]
     Route: 048
  5. HEPARIN [Concomitant]
     Indication: POST PROCEDURAL HAEMORRHAGE
  6. FLUCLOXACILLIN [Concomitant]
  7. BENZYLPENICILLIN [Concomitant]

REACTIONS (3)
  - Compartment syndrome [Unknown]
  - International normalised ratio increased [Unknown]
  - Drug interaction [Unknown]
